FAERS Safety Report 19813204 (Version 1)
Quarter: 2021Q3

REPORT INFORMATION
  Report Type: Spontaneous
  Country: US (occurrence: US)
  Receive Date: 20210909
  Receipt Date: 20210909
  Transmission Date: 20211014
  Serious: Yes (Hospitalization)
  Sender: FDA-Public Use
  Company Number: None

PATIENT
  Age: 62 Year
  Sex: Female
  Weight: 78.75 kg

DRUGS (1)
  1. NIVOLUMAB INFUSION [Suspect]
     Active Substance: NIVOLUMAB
     Indication: NEUROENDOCRINE TUMOUR
     Dates: start: 20190903, end: 20210722

REACTIONS (2)
  - Euglycaemic diabetic ketoacidosis [None]
  - Abdominal pain [None]

NARRATIVE: CASE EVENT DATE: 20210905
